FAERS Safety Report 4336882-1 (Version None)
Quarter: 2004Q2

REPORT INFORMATION
  Report Type: 
  Country: None (occurrence: None)
  Receive Date: 20040407
  Receipt Date: 20040323
  Transmission Date: 20050107
  Serious: Yes (Death, Hospitalization)
  Sender: FDA-Public Use
  Company Number: US-JNJFOC-20040105968

PATIENT
  Age: 54 Year
  Sex: Female
  Weight: 87.0906 kg

DRUGS (9)
  1. REMICADE [Suspect]
     Indication: RHEUMATOID ARTHRITIS
     Dosage: 500 MG, 1 IN 5 WEEK, INTRAVENOUS
     Route: 042
     Dates: start: 20010412, end: 20030801
  2. METHOTREXATE SODIUM [Concomitant]
  3. CELEXA (CITALOPRAM HYDRBOMIDE) [Concomitant]
  4. FOLIC ACD [Concomitant]
  5. ULTRAM [Concomitant]
  6. ZANTAC [Concomitant]
  7. LEVAQUIN [Concomitant]
  8. AZITHROMYCIN [Concomitant]
  9. LOVENOX [Concomitant]

REACTIONS (15)
  - ANAEMIA [None]
  - ASPARTATE AMINOTRANSFERASE INCREASED [None]
  - BLOOD ALBUMIN DECREASED [None]
  - BLOOD CREATINE PHOSPHOKINASE INCREASED [None]
  - BLOOD LACTATE DEHYDROGENASE INCREASED [None]
  - BLOOD SODIUM DECREASED [None]
  - DIARRHOEA [None]
  - LEUKOPENIA [None]
  - NAUSEA [None]
  - PNEUMONIA LEGIONELLA [None]
  - RESPIRATORY DISTRESS [None]
  - RESPIRATORY FAILURE [None]
  - SHIFT TO THE LEFT [None]
  - THROMBOCYTOPENIA [None]
  - VOMITING [None]
